FAERS Safety Report 5434324-6 (Version None)
Quarter: 2007Q3

REPORT INFORMATION
  Report Type: 
  Country: None (occurrence: None)
  Receive Date: 20070831
  Receipt Date: 20070824
  Transmission Date: 20080115
  Serious: Yes (Hospitalization)
  Sender: FDA-Public Use
  Company Number: US-AMGEN-US239086

PATIENT
  Sex: Female
  Weight: 59.9 kg

DRUGS (6)
  1. NEULASTA [Suspect]
     Indication: CHEMOTHERAPY
     Route: 065
     Dates: start: 20070808, end: 20070808
  2. CYTOXAN [Concomitant]
     Route: 065
     Dates: start: 20070807, end: 20070807
  3. ADRIAMYCIN PFS [Concomitant]
     Route: 065
     Dates: start: 20070807, end: 20070807
  4. COMPAZINE [Concomitant]
     Route: 065
     Dates: end: 20070807
  5. EMEND [Concomitant]
     Route: 065
     Dates: end: 20070809
  6. ALOXI [Concomitant]
     Route: 065
     Dates: start: 20070807, end: 20070807

REACTIONS (3)
  - PARAESTHESIA [None]
  - PARAESTHESIA ORAL [None]
  - URTICARIA [None]
